FAERS Safety Report 16965191 (Version 1)
Quarter: 2019Q4

REPORT INFORMATION
  Report Type: Spontaneous
  Country: US (occurrence: US)
  Receive Date: 20190909
  Receipt Date: 20190909
  Transmission Date: 20200122
  Serious: Yes (Hospitalization)
  Sender: FDA-Public Use
  Company Number: None

PATIENT
  Age: 58 Year
  Sex: Female

DRUGS (14)
  1. DULOXETINE. [Concomitant]
     Active Substance: DULOXETINE
  2. ALBUTEROL. [Concomitant]
     Active Substance: ALBUTEROL
  3. NAPROXEN. [Concomitant]
     Active Substance: NAPROXEN
  4. HDROCO/APAP [Concomitant]
  5. NINCOTINE TD [Concomitant]
  6. ACTEMRA [Suspect]
     Active Substance: TOCILIZUMAB
     Indication: RHEUMATOID ARTHRITIS
  7. CLONAZEPAM. [Concomitant]
     Active Substance: CLONAZEPAM
  8. CLONIDINE. [Concomitant]
     Active Substance: CLONIDINE
  9. MAGNESIUM-OX [Concomitant]
  10. CEPHALEXIN. [Concomitant]
     Active Substance: CEPHALEXIN
  11. LORATADINE. [Concomitant]
     Active Substance: LORATADINE
  12. PREDNISONE. [Concomitant]
     Active Substance: PREDNISONE
  13. DOXYCYC MONO [Concomitant]
     Active Substance: DOXYCYCLINE
  14. LEFLUNOMIDE. [Concomitant]
     Active Substance: LEFLUNOMIDE

REACTIONS (1)
  - Cellulitis [None]

NARRATIVE: CASE EVENT DATE: 201908
